FAERS Safety Report 6727761-0 (Version None)
Quarter: 2010Q2

REPORT INFORMATION
  Report Type: 
  Country: None (occurrence: None)
  Receive Date: 20100517
  Receipt Date: 20100509
  Transmission Date: 20101027
  Serious: Yes (Other)
  Sender: FDA-Public Use
  Company Number: CZ-ABBOTT-10P-217-0641413-00

PATIENT
  Sex: Male
  Weight: 71 kg

DRUGS (3)
  1. HUMIRA [Suspect]
     Indication: ANKYLOSING SPONDYLITIS
     Route: 058
     Dates: start: 20071015, end: 20100331
  2. RECOXA [Concomitant]
     Indication: ANKYLOSING SPONDYLITIS
  3. ANALGELICS [Concomitant]
     Indication: ANKYLOSING SPONDYLITIS

REACTIONS (2)
  - PURPURA [None]
  - RASH [None]
